FAERS Safety Report 8255991-8 (Version None)
Quarter: 2012Q2

REPORT INFORMATION
  Report Type: 
  Country: None (occurrence: None)
  Receive Date: 20120403
  Receipt Date: 20120327
  Transmission Date: 20120825
  Serious: Yes (Hospitalization)
  Sender: FDA-Public Use
  Company Number: DK-JNJFOC-20120400370

PATIENT
  Sex: Female

DRUGS (8)
  1. XARELTO [Suspect]
     Indication: KNEE ARTHROPLASTY
     Route: 048
     Dates: start: 20120306, end: 20120312
  2. PAMOL [Concomitant]
     Indication: PAIN
  3. XARELTO [Suspect]
     Indication: THROMBOSIS PROPHYLAXIS
     Route: 048
     Dates: start: 20120306, end: 20120312
  4. CENTYL MED KALIUMKLORID [Concomitant]
     Indication: HYPERTENSION
  5. AMITRIPTYLINE HCL [Concomitant]
     Indication: NEURALGIA
  6. SIMVASTATIN [Concomitant]
     Indication: HYPERCHOLESTEROLAEMIA
  7. LOSARTAN POTASSIUM [Concomitant]
     Indication: HYPERTENSION
  8. POTASSIUM CHLORIDE [Concomitant]

REACTIONS (1)
  - DEEP VEIN THROMBOSIS [None]
